FAERS Safety Report 15623517 (Version 1)
Quarter: 2018Q4

REPORT INFORMATION
  Report Type: Report from Study
  Country: DE (occurrence: DE)
  Receive Date: 20181115
  Receipt Date: 20181115
  Transmission Date: 20190205
  Serious: Yes (Hospitalization)
  Sender: FDA-Public Use
  Company Number: DE-DSJP-DSE-2018-148825

PATIENT

DRUGS (8)
  1. LIPIFACIL [Suspect]
     Active Substance: PRAVASTATIN SODIUM
     Indication: PRODUCT USED FOR UNKNOWN INDICATION
  2. MOXOBETA [Concomitant]
     Active Substance: MOXONIDINE
     Indication: HYPERTENSION
     Dosage: 0.2 MG, QD
     Route: 048
  3. SITAGLIPTIN [Concomitant]
     Active Substance: SITAGLIPTIN
     Indication: TYPE 2 DIABETES MELLITUS
     Dosage: 1 DF, QD
     Route: 048
  4. VOCADO [Concomitant]
     Active Substance: AMLODIPINE BESYLATE\OLMESARTAN MEDOXOMIL
     Indication: TYPE 2 DIABETES MELLITUS
     Dosage: 40 MG, UNK
     Route: 048
  5. VOCADO HCT [Suspect]
     Active Substance: AMLODIPINE BESYLATE\HYDROCHLOROTHIAZIDE\OLMESARTAN MEDOXOMIL
     Indication: PRODUCT USED FOR UNKNOWN INDICATION
     Route: 048
  6. VELMETIA [Suspect]
     Active Substance: METFORMIN\SITAGLIPTIN
     Indication: TYPE 2 DIABETES MELLITUS
     Dosage: 1000/50 MG, BID
  7. COSENTYX [Suspect]
     Active Substance: SECUKINUMAB
     Indication: PSORIASIS
     Dosage: 300 MG, ONCE EVERY 4 WK
     Route: 058
     Dates: start: 20150603
  8. PRAVASTATIN. [Concomitant]
     Active Substance: PRAVASTATIN
     Indication: TYPE 2 DIABETES MELLITUS
     Dosage: 40 MG, QD

REACTIONS (13)
  - Thyroid mass [Unknown]
  - Eye movement disorder [Unknown]
  - Diplopia [Recovered/Resolved]
  - Stenosis [Unknown]
  - IIIrd nerve paralysis [Recovered/Resolved]
  - Visual field defect [Recovered/Resolved]
  - Blood triglycerides increased [Unknown]
  - Visual acuity reduced [Recovered/Resolved]
  - Oedema mucosal [Unknown]
  - Urinary tract infection [Unknown]
  - Glycosylated haemoglobin increased [Unknown]
  - Osteochondrosis [Unknown]
  - Blister [Unknown]

NARRATIVE: CASE EVENT DATE: 20180224
